FAERS Safety Report 8855259 (Version 1)
Quarter: 2012Q4

REPORT INFORMATION
  Report Type: 
  Country: US (occurrence: US)
  Receive Date: 20121023
  Receipt Date: 20121023
  Transmission Date: 20130627
  Serious: No
  Sender: FDA-Public Use
  Company Number: US-AMGEN-USASP2012060102

PATIENT
  Age: 41 Year
  Sex: Female
  Weight: 108.84 kg

DRUGS (8)
  1. ENBREL [Suspect]
     Indication: PSORIASIS
     Dosage: 50 mg, qwk
     Route: 058
  2. METHOTREXATE [Concomitant]
     Dosage: 2.5 mg, UNK
  3. FOLIC ACID [Concomitant]
     Dosage: UNK
  4. XANAX [Concomitant]
     Dosage: 1 mg, UNK
  5. LOVASTATIN [Concomitant]
     Dosage: 10 mg, UNK
  6. BIOTIN [Concomitant]
     Dosage: 400 mug, UNK
  7. WELLBUTRIN [Concomitant]
     Dosage: 100 mg, UNK
  8. VITAMIN B COMPLEX [Concomitant]
     Dosage: UNK

REACTIONS (5)
  - Psoriasis [Unknown]
  - Onychomadesis [Unknown]
  - Pain [Unknown]
  - Injection site erythema [Recovered/Resolved]
  - Injection site swelling [Recovered/Resolved]
